FAERS Safety Report 11848829 (Version 1)
Quarter: 2015Q4

REPORT INFORMATION
  Report Type: Spontaneous
  Country: US (occurrence: US)
  Receive Date: 20151218
  Receipt Date: 20151218
  Transmission Date: 20160305
  Serious: Yes (Other)
  Sender: FDA-Public Use
  Company Number: US-BEH-2015056750

PATIENT
  Sex: Male
  Weight: 58 kg

DRUGS (23)
  1. MUCINEX [Concomitant]
     Active Substance: GUAIFENESIN
  2. PROTONIX [Concomitant]
     Active Substance: PANTOPRAZOLE SODIUM
  3. VITAMIN C [Concomitant]
     Active Substance: ASCORBIC ACID
  4. CLOTRIMAZOLE. [Concomitant]
     Active Substance: CLOTRIMAZOLE
  5. DIPHENHYDRAMINE. [Concomitant]
     Active Substance: DIPHENHYDRAMINE
  6. PROGRAF [Concomitant]
     Active Substance: TACROLIMUS\TACROLIMUS ANHYDROUS
  7. LMX [Concomitant]
     Active Substance: LIDOCAINE
  8. HUMULIN NOS [Concomitant]
     Active Substance: INSULIN HUMAN
  9. BACTRIM [Concomitant]
     Active Substance: SULFAMETHOXAZOLE\TRIMETHOPRIM
  10. PANCREASE MT [Concomitant]
     Active Substance: PANCRELIPASE
  11. HIZENTRA [Suspect]
     Active Substance: HUMAN IMMUNOGLOBULIN G
     Indication: IMMUNODEFICIENCY COMMON VARIABLE
     Dosage: 2 GM 10 ML VIAL
     Route: 058
  12. AMBISOME [Concomitant]
     Active Substance: AMPHOTERICIN B
  13. AZITHROMYCIN [Concomitant]
     Active Substance: AZITHROMYCIN ANHYDROUS
  14. EPIPEN [Concomitant]
     Active Substance: EPINEPHRINE
  15. HIZENTRA [Suspect]
     Active Substance: HUMAN IMMUNOGLOBULIN G
     Route: 058
     Dates: start: 20110613
  16. RITALIN [Concomitant]
     Active Substance: METHYLPHENIDATE HYDROCHLORIDE
  17. COLISTIN [Concomitant]
     Active Substance: COLISTIN
  18. MULTIVITAMINS [Concomitant]
     Active Substance: VITAMINS
  19. PREDNISONE. [Concomitant]
     Active Substance: PREDNISONE
  20. MUPIROCIN. [Concomitant]
     Active Substance: MUPIROCIN
  21. ALBUTEROL. [Concomitant]
     Active Substance: ALBUTEROL
  22. CALCIUM [Concomitant]
     Active Substance: CALCIUM
  23. PRAVACHOL [Concomitant]
     Active Substance: PRAVASTATIN SODIUM

REACTIONS (1)
  - Staphylococcal infection [Unknown]
